FAERS Safety Report 6833694-1 (Version None)
Quarter: 2010Q3

REPORT INFORMATION
  Report Type: 
  Country: None (occurrence: None)
  Receive Date: 20100712
  Receipt Date: 20070402
  Transmission Date: 20110219
  Serious: No
  Sender: FDA-Public Use
  Company Number: US-PFIZER INC-2007026922

PATIENT
  Sex: Female
  Weight: 86.18 kg

DRUGS (8)
  1. CHANTIX [Suspect]
     Indication: SMOKING CESSATION THERAPY
     Dates: start: 20070301
  2. ALL OTHER THERAPEUTIC PRODUCTS [Interacting]
  3. INSULIN [Concomitant]
  4. TRAZODONE [Concomitant]
  5. PAXIL [Concomitant]
  6. ADDERALL 10 [Concomitant]
  7. ALBUTEROL [Concomitant]
  8. WELLBUTRIN [Concomitant]
     Indication: SMOKING CESSATION THERAPY

REACTIONS (4)
  - DIZZINESS [None]
  - DRUG INTERACTION [None]
  - MOOD ALTERED [None]
  - NAUSEA [None]
